FAERS Safety Report 5220139-0 (Version None)
Quarter: 2007Q1

REPORT INFORMATION
  Report Type: 
  Country: None (occurrence: None)
  Receive Date: 20061121
  Receipt Date: 20060828
  Transmission Date: 20070707
  Serious: No
  Sender: FDA-Public Use
  Company Number: TPA2006A01453

PATIENT
  Age: 30 Year
  Sex: Female

DRUGS (9)
  1. ROZEREM [Suspect]
     Indication: INSOMNIA
     Dosage: 8 MG, QHS, PER ORAL
     Route: 048
  2. AMBIEN [Suspect]
     Dosage: 10 MG, QHS, PER ORAL
     Route: 048
  3. REQUIP (ROPINROLE HYDROCHLORIDE) (TABLETS) [Concomitant]
  4. ADVAIR (FLUTICASONE PROPIONATE, SALMETEROL XINAFOATE) (INHALANT) [Concomitant]
  5. WELLBUTRIN XL (BUPROPION HYDROCHLORIDE) (150 MILLIGRAM) [Concomitant]
  6. CLONAZEPAM (CLONAZEPAM) (1 MILLIGRAM) [Concomitant]
  7. PROVIGIL (MODAFINIL) (200 MILLIGRAM, TABLETS) [Concomitant]
  8. EFFEXOR XR (VENLAFAXINE HYDROCHLORIDE) (37.5 MILLIGRAM) [Concomitant]
  9. MIRAPEX (PRAMIPEXOLE) (TABLETS) [Concomitant]

REACTIONS (1)
  - SOMNOLENCE [None]
